FAERS Safety Report 6250741-9 (Version None)
Quarter: 2009Q2

REPORT INFORMATION
  Report Type: 
  Country: None (occurrence: None)
  Receive Date: 20090630
  Receipt Date: 20080905
  Transmission Date: 20091009
  Serious: No
  Sender: FDA-Public Use
  Company Number: US-ABBOTT-08P-163-0473374-00

PATIENT
  Sex: Female

DRUGS (2)
  1. ZEMPLAR [Suspect]
     Indication: HYPERPARATHYROIDISM
     Dates: start: 20080401
  2. PYRIDOXINE HYDROCHLORIDE [Concomitant]
     Indication: FURUNCLE
     Dates: start: 20080101

REACTIONS (3)
  - HEADACHE [None]
  - MUSCULOSKELETAL PAIN [None]
  - NECK PAIN [None]
